FAERS Safety Report 5542594-9 (Version None)
Quarter: 2007Q4

REPORT INFORMATION
  Report Type: 
  Country: None (occurrence: None)
  Receive Date: 20071206
  Receipt Date: 20071206
  Transmission Date: 20080405
  Serious: No
  Sender: FDA-Public Use
  Company Number: None

PATIENT
  Age: 40 Year
  Sex: Male
  Weight: 117 kg

DRUGS (4)
  1. OXCARBAZEPINE [Suspect]
     Indication: EPILEPSY
     Dosage: 150 MG AM;  300MG PM
     Dates: start: 20060101, end: 20070101
  2. CLONAZEPAM [Concomitant]
  3. ABILIFY [Concomitant]
  4. COGENTIN [Concomitant]

REACTIONS (1)
  - HYPERSOMNIA [None]
